FAERS Safety Report 11717715 (Version 1)
Quarter: 2015Q4

REPORT INFORMATION
  Report Type: Other
  Country: GB (occurrence: GB)
  Receive Date: 20151110
  Receipt Date: 20151110
  Transmission Date: 20160304
  Serious: Yes (Other)
  Sender: FDA-Public Use
  Company Number: GB-CIPLA LTD.-2015GB08510

PATIENT

DRUGS (11)
  1. DIAZEPAM. [Concomitant]
     Active Substance: DIAZEPAM
     Dosage: 1 DF, 1 UP TO 3 TIMES PER DAY AS NECESSARY
     Route: 065
     Dates: start: 20150924, end: 20150929
  2. LANSOPRAZOLE. [Concomitant]
     Active Substance: LANSOPRAZOLE
     Dosage: 1 DF, QD
     Route: 065
     Dates: start: 20150728, end: 20150825
  3. FAMOTIDINE. [Concomitant]
     Active Substance: FAMOTIDINE
     Dosage: 1-2 PER DAY
     Route: 065
     Dates: start: 20151005
  4. HYDROCORTISONE. [Concomitant]
     Active Substance: HYDROCORTISONE
     Dosage: 1 DF, BID, APPLY SPARINGLY
     Route: 065
     Dates: start: 20150928
  5. NAPROXEN. [Concomitant]
     Active Substance: NAPROXEN
     Dosage: 1 DF, BID
     Route: 065
     Dates: start: 20150820, end: 20150822
  6. TRAMADOL. [Concomitant]
     Active Substance: TRAMADOL
     Dosage: TAKE 1 OR 2 AS DIRECTED
     Route: 065
     Dates: start: 20151008, end: 20151015
  7. MOMETASONE [Concomitant]
     Active Substance: MOMETASONE
     Dosage: 2 DF, BID, WEAN DOWN EACH MONTH
     Route: 065
     Dates: start: 20150410
  8. SERTRALINE [Suspect]
     Active Substance: SERTRALINE HYDROCHLORIDE
     Dosage: UNK
     Route: 065
     Dates: start: 20151008
  9. CLINDAMYCIN [Concomitant]
     Active Substance: CLINDAMYCIN\CLINDAMYCIN PHOSPHATE
     Dosage: 1 DF, QD
     Route: 065
     Dates: start: 20150813, end: 20151012
  10. ZOLPIDEM [Concomitant]
     Active Substance: ZOLPIDEM\ZOLPIDEM TARTRATE
     Dosage: 1 DF, AS NECESSARY, AT NIGHT WHEN REQUIRED FOR SHORT TERM.
     Route: 065
     Dates: start: 20150803, end: 20150831
  11. CYCLIZINE [Concomitant]
     Active Substance: CYCLIZINE
     Dosage: 1 DF, THREE  TIMES A DAY AS NECESSARY
     Route: 065
     Dates: start: 20150813, end: 20150903

REACTIONS (2)
  - Depression [Recovered/Resolved]
  - Disturbance in attention [Recovered/Resolved]

NARRATIVE: CASE EVENT DATE: 20151021
